FAERS Safety Report 11316734 (Version 1)
Quarter: 2015Q3

REPORT INFORMATION
  Report Type: Spontaneous
  Country: GB (occurrence: None)
  Receive Date: 20150724
  Receipt Date: 20150724
  Transmission Date: 20151125
  Serious: Yes (Other)
  Sender: FDA-Public Use
  Company Number: CL-641-2015

PATIENT
  Age: 18 Year
  Sex: Female

DRUGS (2)
  1. CHLORHEXIDINE [Suspect]
     Active Substance: CHLORHEXIDINE
  2. METRONIDAZOLE UNK [Suspect]
     Active Substance: METRONIDAZOLE
     Indication: TOOTH INFECTION
     Route: 048
     Dates: start: 20150629

REACTIONS (1)
  - Loss of consciousness [None]

NARRATIVE: CASE EVENT DATE: 20150629
